FAERS Safety Report 5301949-8 (Version None)
Quarter: 2007Q2

REPORT INFORMATION
  Report Type: 
  Country: None (occurrence: None)
  Receive Date: 20070416
  Receipt Date: 20070416
  Transmission Date: 20071010
  Serious: Yes (Hospitalization)
  Sender: FDA-Public Use
  Company Number: None

PATIENT
  Sex: Male
  Weight: 99.7913 kg

DRUGS (8)
  1. BEVACIZUMAB 15 MG/KG GENENTECH [Suspect]
     Indication: PROSTATE CANCER
     Dosage: 1500 MG Q THREE WEEKS IV DRIP
     Route: 041
     Dates: start: 20070227, end: 20070320
  2. ERLOTINIB 100 MG OSI PHARMACEUTICALS [Suspect]
     Indication: PROSTATE CANCER
     Dosage: 200 MG QD PO
     Route: 048
     Dates: start: 20070227, end: 20070320
  3. AVASTIN [Concomitant]
  4. TAXOTERE [Concomitant]
  5. PREDNISONE TAB [Concomitant]
  6. TARCEVA [Concomitant]
  7. ACTOPLUS -PIOGLITAZONE/METFORMIN [Concomitant]
  8. ASPIRIN [Concomitant]

REACTIONS (9)
  - ANAEMIA [None]
  - DIZZINESS [None]
  - DYSPNOEA EXERTIONAL [None]
  - DYSSTASIA [None]
  - FAECES DISCOLOURED [None]
  - NAUSEA [None]
  - PRESYNCOPE [None]
  - PYREXIA [None]
  - VOMITING [None]
